FAERS Safety Report 20609060 (Version 1)
Quarter: 2022Q1

REPORT INFORMATION
  Report Type: Spontaneous
  Country: US (occurrence: US)
  Receive Date: 20220317
  Receipt Date: 20220317
  Transmission Date: 20220423
  Serious: No
  Sender: FDA-Public Use
  Company Number: US-SMITH AND NEPHEW, INC-2021SMT00011

PATIENT
  Age: 66 Year
  Sex: Female
  Weight: 81.633 kg

DRUGS (6)
  1. COLLAGENASE SANTYL [Suspect]
     Active Substance: COLLAGENASE CLOSTRIDIUM HISTOLYTICUM
     Indication: Wound
     Dosage: AS CLOSE TO A NICKEL THICKNESS AS I CAN 1X/DAY TO THE LOWER LEFT LEG ABOVE THE ANKLE BONE
     Route: 061
     Dates: start: 20210211
  2. DOXYCYCLINE [Suspect]
     Active Substance: DOXYCYCLINE
     Dosage: UNK
     Dates: start: 2021
  3. UNSPECIFIED INGREDIENT [Concomitant]
     Active Substance: UNSPECIFIED INGREDIENT
  4. HYDROXYUREA [Concomitant]
     Active Substance: HYDROXYUREA
  5. NIFEDIPINE [Concomitant]
     Active Substance: NIFEDIPINE
  6. ASPIRIN [Concomitant]
     Active Substance: ASPIRIN

REACTIONS (8)
  - Application site erythema [Recovered/Resolved]
  - Wound complication [Recovering/Resolving]
  - Oedema peripheral [Recovering/Resolving]
  - Hypoaesthesia [Recovered/Resolved]
  - Rash erythematous [Recovered/Resolved]
  - Product administration error [Recovered/Resolved]
  - Rash papular [Recovered/Resolved]
  - Inhibitory drug interaction [Unknown]

NARRATIVE: CASE EVENT DATE: 20210201
